FAERS Safety Report 6866107-4 (Version None)
Quarter: 2010Q3

REPORT INFORMATION
  Report Type: 
  Country: None (occurrence: None)
  Receive Date: 20100722
  Receipt Date: 20100713
  Transmission Date: 20110219
  Serious: Yes (Other)
  Sender: FDA-Public Use
  Company Number: GB-ELI_LILLY_AND_COMPANY-GB201007002806

PATIENT
  Age: 60 Year
  Sex: Male
  Weight: 84 kg

DRUGS (4)
  1. BYETTA [Suspect]
     Indication: TYPE 2 DIABETES MELLITUS
     Dosage: 10 UG, 2/D
     Route: 058
     Dates: start: 20091014, end: 20100414
  2. METFORMIN [Concomitant]
     Indication: TYPE 2 DIABETES MELLITUS
     Dosage: 75 MG, UNKNOWN
     Route: 048
  3. ASPIRIN [Concomitant]
     Dosage: 500 MG, UNKNOWN
     Route: 048
  4. PHENOBARBITAL TAB [Concomitant]
     Dosage: 90 MG, UNKNOWN
     Route: 048

REACTIONS (7)
  - CHOLELITHIASIS [None]
  - DECREASED APPETITE [None]
  - LIVER FUNCTION TEST ABNORMAL [None]
  - METASTASES TO LIVER [None]
  - METASTASES TO LUNG [None]
  - PANCREATIC CARCINOMA METASTATIC [None]
  - WEIGHT DECREASED [None]
